FAERS Safety Report 18879344 (Version 1)
Quarter: 2021Q1

REPORT INFORMATION
  Report Type: Spontaneous
  Country: US (occurrence: US)
  Receive Date: 20210211
  Receipt Date: 20210211
  Transmission Date: 20210420
  Serious: No
  Sender: FDA-Public Use
  Company Number: None

PATIENT
  Age: 61 Year
  Sex: Female

DRUGS (1)
  1. GADAVIST [Suspect]
     Active Substance: GADOBUTROL
     Dosage: ?          OTHER FREQUENCY:N/A;?
     Route: 040

REACTIONS (2)
  - Nausea [None]
  - Contrast media reaction [None]

NARRATIVE: CASE EVENT DATE: 20210129
